FAERS Safety Report 7490966-8 (Version None)
Quarter: 2011Q2

REPORT INFORMATION
  Report Type: 
  Country: None (occurrence: None)
  Receive Date: 20110517
  Receipt Date: 20110517
  Transmission Date: 20111010
  Serious: Yes (Other)
  Sender: FDA-Public Use
  Company Number: None

PATIENT
  Sex: Male
  Weight: 106.5953 kg

DRUGS (1)
  1. CIPROFLOXACIN [Suspect]
     Indication: URINARY TRACT INFECTION
     Dosage: TWICE DAILY PO
     Route: 048
     Dates: start: 20110407, end: 20110411

REACTIONS (5)
  - CONDITION AGGRAVATED [None]
  - ARTHRALGIA [None]
  - TENDONITIS [None]
  - GOUT [None]
  - OEDEMA PERIPHERAL [None]
